FAERS Safety Report 5913750-2 (Version None)
Quarter: 2008Q4

REPORT INFORMATION
  Report Type: 
  Country: None (occurrence: None)
  Receive Date: 20081007
  Receipt Date: 20080923
  Transmission Date: 20090506
  Serious: No
  Sender: FDA-Public Use
  Company Number: 238680J08USA

PATIENT
  Age: 32 Year
  Sex: Male
  Weight: 102 kg

DRUGS (4)
  1. REBIF [Suspect]
     Indication: MULTIPLE SCLEROSIS
     Dosage: 44 MCG, 3 IN 1 WEEKS, SUBCUTANEOUS
     Route: 058
     Dates: start: 20080607
  2. SOLU-MEDROL [Concomitant]
  3. ACIPHEX [Concomitant]
  4. ALEVE (CAPLET) [Concomitant]

REACTIONS (2)
  - OPTIC NEURITIS [None]
  - VISION BLURRED [None]
